FAERS Safety Report 6300246-1 (Version None)
Quarter: 2009Q3

REPORT INFORMATION
  Report Type: 
  Country: None (occurrence: None)
  Receive Date: 20090803
  Receipt Date: 20090722
  Transmission Date: 20100115
  Serious: Yes (Hospitalization)
  Sender: FDA-Public Use
  Company Number: DSA_33924_2009

PATIENT
  Age: 68 Year
  Sex: Female

DRUGS (6)
  1. ENALAPRIL MALEATE AND HYDROCHLOROTHIAZIDE [Suspect]
     Indication: HYPERTENSION
     Dosage: (1 DF QD ORAL)
     Route: 048
     Dates: end: 20090114
  2. PAROXETINE HCL [Suspect]
     Indication: DEPRESSION
     Dosage: (DF ORAL)
     Route: 048
     Dates: start: 20090111, end: 20090114
  3. ALPRAZOLAM [Concomitant]
  4. BROMAZEPAM [Concomitant]
  5. DOMPERIDONE [Concomitant]
  6. ZOLPIDEM TARTRATE [Concomitant]

REACTIONS (3)
  - ABNORMAL BEHAVIOUR [None]
  - ANTIDIURETIC HORMONE ABNORMALITY [None]
  - HYPONATRAEMIA [None]
